FAERS Safety Report 21442353 (Version 1)
Quarter: 2022Q4

REPORT INFORMATION
  Report Type: Other
  Country: None (occurrence: US)
  Receive Date: 20221011
  Receipt Date: 20221011
  Transmission Date: 20230113
  Serious: Yes (Life-Threatening, Hospitalization)
  Sender: FDA-Public Use
  Company Number: US-California Department of Public Health-2133703

PATIENT
  Age: 5 Month
  Sex: Male
  Weight: 7 kg

DRUGS (9)
  1. BABYBIG [Suspect]
     Active Substance: HUMAN BOTULINUM NEUROTOXIN A/B IMMUNE GLOBULIN
     Indication: Botulism
     Route: 041
     Dates: start: 20220924, end: 20220924
  2. CEFTRIAXONE [Concomitant]
     Active Substance: CEFTRIAXONE
     Route: 042
  3. FAMOTIDINE [Concomitant]
     Active Substance: FAMOTIDINE
     Route: 042
  4. PLASMA-LYTE A [Concomitant]
     Active Substance: MAGNESIUM CHLORIDE\POTASSIUM CHLORIDE\SODIUM ACETATE\SODIUM CHLORIDE\SODIUM GLUCONATE
     Route: 042
  5. FENTANYL [Concomitant]
     Active Substance: FENTANYL
     Route: 041
  6. PEDIATRIC GLYCERIN LAXATIVE [Concomitant]
     Active Substance: GLYCERIN
     Route: 054
  7. POTASSIUM CHLORIDE IN DEXTROSE AND SODIUM CHLORIDE [Concomitant]
     Active Substance: DEXTROSE\DEXTROSE MONOHYDRATE\POTASSIUM CHLORIDE\SODIUM CHLORIDE
     Route: 042
  8. FENTANYL [Concomitant]
     Active Substance: FENTANYL
     Route: 040
  9. PRECEDEX [Concomitant]
     Active Substance: DEXMEDETOMIDINE HYDROCHLORIDE
     Route: 042

REACTIONS (2)
  - Cardiac arrest [Recovered/Resolved]
  - Bradycardia [Recovered/Resolved]

NARRATIVE: CASE EVENT DATE: 20220926
